FAERS Safety Report 9739259 (Version 1)
Quarter: 2013Q4

REPORT INFORMATION
  Report Type: Spontaneous
  Country: US (occurrence: US)
  Receive Date: 20131209
  Receipt Date: 20131209
  Transmission Date: 20140711
  Serious: Yes (Hospitalization)
  Sender: FDA-Public Use
  Company Number: US-BAYER-2013-148647

PATIENT
  Age: 39 Year
  Sex: Female
  Weight: 66.21 kg

DRUGS (3)
  1. YAZ [Suspect]
     Route: 048
  2. YASMIN [Suspect]
     Route: 048
  3. BACTRIM DS [Concomitant]
     Indication: URINARY TRACT INFECTION
     Dosage: UNK
     Route: 048
     Dates: start: 20061001

REACTIONS (1)
  - Pulmonary embolism [None]
